FAERS Safety Report 8595836-X (Version None)
Quarter: 2012Q3

REPORT INFORMATION
  Report Type: 
  Country: None (occurrence: None)
  Receive Date: 20120815
  Receipt Date: 19911202
  Transmission Date: 20120928
  Serious: Yes (Other)
  Sender: FDA-Public Use
  Company Number: US-ROCHE-1100521

PATIENT
  Age: 58 Year
  Sex: Female

DRUGS (3)
  1. HEPARIN [Concomitant]
     Route: 042
  2. LOPRESSOR [Concomitant]
  3. ACTIVASE [Suspect]
     Indication: ACUTE MYOCARDIAL INFARCTION

REACTIONS (1)
  - BLOOD PRESSURE INCREASED [None]
